FAERS Safety Report 6287784-5 (Version None)
Quarter: 2009Q3

REPORT INFORMATION
  Report Type: 
  Country: None (occurrence: None)
  Receive Date: 20090729
  Receipt Date: 20080614
  Transmission Date: 20100115
  Serious: Yes (Hospitalization)
  Sender: FDA-Public Use
  Company Number: US-ASTRAZENECA-2006UW10765

PATIENT
  Sex: Female
  Weight: 95.3 kg

DRUGS (9)
  1. SEROQUEL [Suspect]
     Indication: SCHIZOPHRENIA
     Route: 048
     Dates: start: 19970101, end: 20050101
  2. ABILIFY [Concomitant]
  3. OLANZAPINE [Concomitant]
  4. GLUCOTROL [Concomitant]
     Dates: start: 20000926
  5. ULTRAM [Concomitant]
     Dates: start: 20010602
  6. ADALAT CC [Concomitant]
     Dates: start: 20010102
  7. KLONOPIN [Concomitant]
     Dates: start: 20030909
  8. PAXIL [Concomitant]
     Dates: start: 20031202
  9. LORAZEPAM [Concomitant]
     Dates: start: 20040622

REACTIONS (3)
  - BLOOD DISORDER [None]
  - DIABETES MELLITUS [None]
  - SYNCOPE [None]
